FAERS Safety Report 5293551-1 (Version None)
Quarter: 2007Q2

REPORT INFORMATION
  Report Type: 
  Country: None (occurrence: None)
  Receive Date: 20070411
  Receipt Date: 20070402
  Transmission Date: 20071010
  Serious: Yes (Other)
  Sender: FDA-Public Use
  Company Number: HQWYE336102APR07

PATIENT
  Sex: Female

DRUGS (1)
  1. AMIODARONE HCL [Suspect]
     Indication: CONGESTIVE CARDIOMYOPATHY
     Route: 048
     Dates: start: 20060720, end: 20070202

REACTIONS (4)
  - CORNEAL OPACITY [None]
  - CORNEAL PIGMENTATION [None]
  - NIGHT BLINDNESS [None]
  - VISION BLURRED [None]
